FAERS Safety Report 17101948 (Version 1)
Quarter: 2019Q4

REPORT INFORMATION
  Report Type: Spontaneous
  Country: CH (occurrence: CH)
  Receive Date: 20191202
  Receipt Date: 20191202
  Transmission Date: 20200122
  Serious: Yes (Other)
  Sender: FDA-Public Use
  Company Number: CH-JNJFOC-20191131858

PATIENT
  Age: 32 Year
  Sex: Female

DRUGS (1)
  1. SIMPONI [Suspect]
     Active Substance: GOLIMUMAB
     Indication: CROHN^S DISEASE
     Route: 058

REACTIONS (5)
  - Cervical dysplasia [Unknown]
  - Off label use [Unknown]
  - Human papilloma virus test positive [Unknown]
  - Product use in unapproved indication [Unknown]
  - Vulval cancer stage 0 [Unknown]
